FAERS Safety Report 8471118-1 (Version None)
Quarter: 2012Q2

REPORT INFORMATION
  Report Type: 
  Country: None (occurrence: None)
  Receive Date: 20120627
  Receipt Date: 20120620
  Transmission Date: 20120825
  Serious: Yes (Other)
  Sender: FDA-Public Use
  Company Number: GB-PFIZER INC-2012148248

PATIENT
  Age: 64 Year
  Sex: Female

DRUGS (3)
  1. NARDIL [Suspect]
     Dosage: 15 MG, 2X/DAY
     Dates: end: 20110915
  2. PREGABALIN [Suspect]
     Dosage: UNK
  3. NARDIL [Suspect]
     Indication: DEPRESSION
     Dosage: 15 MG, 3X/DAY

REACTIONS (6)
  - BLOOD PRESSURE DECREASED [None]
  - ARTHROPATHY [None]
  - LOSS OF CONSCIOUSNESS [None]
  - WALKING DISABILITY [None]
  - SJOGREN'S SYNDROME [None]
  - DRUG INEFFECTIVE [None]
